FAERS Safety Report 7406150-X (Version None)
Quarter: 2011Q2

REPORT INFORMATION
  Report Type: 
  Country: None (occurrence: None)
  Receive Date: 20110411
  Receipt Date: 20110217
  Transmission Date: 20111010
  Serious: Yes (Other)
  Sender: FDA-Public Use
  Company Number: US-AMGEN-USASP2011009609

PATIENT
  Age: 60 Year
  Sex: Female

DRUGS (4)
  1. FOLINIC ACID [Concomitant]
     Dosage: UNK
  2. FLUOROURACIL [Concomitant]
     Dosage: UNK
  3. VECTIBIX [Suspect]
     Indication: COLORECTAL CANCER METASTATIC
     Dates: start: 20101206
  4. IRINOTECAN [Concomitant]
     Dosage: UNK

REACTIONS (1)
  - DERMATITIS [None]
